FAERS Safety Report 15856339 (Version 1)
Quarter: 2019Q1

REPORT INFORMATION
  Report Type: Spontaneous
  Country: BE (occurrence: BE)
  Receive Date: 20190123
  Receipt Date: 20190123
  Transmission Date: 20190417
  Serious: Yes (Other)
  Sender: FDA-Public Use
  Company Number: BE-LUPIN PHARMACEUTICALS INC.-2018-09287

PATIENT
  Age: 12 Year
  Sex: Female

DRUGS (1)
  1. OMEPRAZOLE. [Suspect]
     Active Substance: OMEPRAZOLE
     Indication: GASTRITIS
     Dosage: 20 MG, UNK
     Route: 065

REACTIONS (5)
  - Negative thoughts [Recovered/Resolved]
  - Depersonalisation/derealisation disorder [Recovered/Resolved]
  - Delusion [Recovered/Resolved]
  - Psychotic symptom [Recovered/Resolved]
  - Thinking abnormal [Recovered/Resolved]
